FAERS Safety Report 21585861 (Version 2)
Quarter: 2022Q4

REPORT INFORMATION
  Report Type: Spontaneous
  Country: US (occurrence: US)
  Receive Date: 20221111
  Receipt Date: 20221116
  Transmission Date: 20230112
  Serious: Yes (Other)
  Sender: FDA-Public Use
  Company Number: US-ALLERGAN-2236854US

PATIENT
  Sex: Female
  Weight: 65.317 kg

DRUGS (1)
  1. QULIPTA [Suspect]
     Active Substance: ATOGEPANT
     Indication: Product used for unknown indication
     Dosage: UNK, QD
     Dates: start: 20221104

REACTIONS (3)
  - Surgery [Not Recovered/Not Resolved]
  - Adverse event [Unknown]
  - Hernia [Unknown]

NARRATIVE: CASE EVENT DATE: 20220401
